FAERS Safety Report 21286490 (Version 1)
Quarter: 2022Q3

REPORT INFORMATION
  Report Type: Spontaneous
  Country: US (occurrence: None)
  Receive Date: 20220902
  Receipt Date: 20220902
  Transmission Date: 20221026
  Serious: No
  Sender: FDA-Public Use
  Company Number: None

PATIENT
  Age: 58 Year
  Sex: Female
  Weight: 65.25 kg

DRUGS (6)
  1. TREMFYA [Suspect]
     Active Substance: GUSELKUMAB
     Dosage: OTHER FREQUENCY : ONCE;?
     Route: 030
     Dates: start: 20220831
  2. COVID-19 VACCINE NOS [Suspect]
     Active Substance: COVID-19 VACCINE NOS
  3. UNSPECIFIED INGREDIENT [Concomitant]
     Active Substance: UNSPECIFIED INGREDIENT
  4. VITAMIN D [Concomitant]
     Active Substance: VITAMIN D NOS
  5. ASPIRIN [Concomitant]
     Active Substance: ASPIRIN
  6. KRILL OIL [Concomitant]
     Active Substance: DIETARY SUPPLEMENT\KRILL OIL

REACTIONS (6)
  - Influenza like illness [None]
  - Nausea [None]
  - Chills [None]
  - Headache [None]
  - COVID-19 immunisation [None]
  - Immunisation [None]

NARRATIVE: CASE EVENT DATE: 20220831
